FAERS Safety Report 10061591 (Version 1)
Quarter: 2014Q2

REPORT INFORMATION
  Report Type: Spontaneous
  Country: US (occurrence: None)
  Receive Date: 20140404
  Receipt Date: 20140404
  Transmission Date: 20141212
  Serious: Yes (Disabling)
  Sender: FDA-Public Use
  Company Number: None

PATIENT
  Age: 29 Year
  Sex: Female
  Weight: 127.01 kg

DRUGS (4)
  1. LUPRON [Suspect]
     Indication: ENDOMETRIOSIS
     Dosage: 11.25MG?EVERY 3 MONTHS?INTO THE MUSCLE
     Dates: start: 20131129, end: 20140221
  2. LUPRON [Suspect]
     Indication: PELVIC PAIN
     Dosage: 11.25MG?EVERY 3 MONTHS?INTO THE MUSCLE
     Dates: start: 20131129, end: 20140221
  3. LUPRON [Suspect]
     Indication: ENDOMETRIOSIS
     Dosage: 11.25MG?EVERY 3 MONTHS?INTO THE MUSCLE
     Dates: start: 20130905, end: 20131129
  4. LUPRON [Suspect]
     Indication: PELVIC PAIN
     Dosage: 11.25MG?EVERY 3 MONTHS?INTO THE MUSCLE
     Dates: start: 20130905, end: 20131129

REACTIONS (2)
  - Myalgia [None]
  - Amenorrhoea [None]
